FAERS Safety Report 23831218 (Version 1)
Quarter: 2024Q2

REPORT INFORMATION
  Report Type: Report from Study
  Country: CN (occurrence: CN)
  Receive Date: 20240508
  Receipt Date: 20240508
  Transmission Date: 20240716
  Serious: Yes (Hospitalization)
  Sender: FDA-Public Use
  Company Number: CN-BAYER-2024A067416

PATIENT
  Sex: Female

DRUGS (1)
  1. STIVARGA [Suspect]
     Active Substance: REGORAFENIB\REGORAFENIB MONOHYDRATE
     Indication: Gastrointestinal stromal tumour
     Dosage: 120 MG, QD
     Route: 048
     Dates: start: 20240416, end: 2024

REACTIONS (2)
  - Tumour rupture [Unknown]
  - Off label use [None]

NARRATIVE: CASE EVENT DATE: 20240101
